FAERS Safety Report 8957363 (Version 1)
Quarter: 2012Q4

REPORT INFORMATION
  Report Type: 
  Country: IT (occurrence: IT)
  Receive Date: 20121211
  Receipt Date: 20121211
  Transmission Date: 20130627
  Serious: Yes (Life-Threatening)
  Sender: FDA-Public Use
  Company Number: IT-ROCHE-1163484

PATIENT
  Age: 84 Year
  Sex: Female

DRUGS (1)
  1. MABTHERA [Suspect]
     Indication: CHEMOTHERAPY
     Route: 042
     Dates: start: 20120828, end: 20121023

REACTIONS (1)
  - Progressive multifocal leukoencephalopathy [Unknown]
